FAERS Safety Report 7134773-4 (Version None)
Quarter: 2010Q4

REPORT INFORMATION
  Report Type: 
  Country: None (occurrence: None)
  Receive Date: 20101203
  Receipt Date: 20101124
  Transmission Date: 20110411
  Serious: Yes (Other)
  Sender: FDA-Public Use
  Company Number: DE-ROCHE-744914

PATIENT
  Age: 35 Year
  Sex: Male

DRUGS (1)
  1. LARIAM [Suspect]
     Route: 065

REACTIONS (5)
  - DEPRESSED MOOD [None]
  - ILL-DEFINED DISORDER [None]
  - INITIAL INSOMNIA [None]
  - MUSCLE CONTRACTIONS INVOLUNTARY [None]
  - PSYCHOTIC DISORDER [None]
